FAERS Safety Report 10839483 (Version 1)
Quarter: 2015Q1

REPORT INFORMATION
  Report Type: Report from Study
  Country: US (occurrence: US)
  Receive Date: 20150220
  Receipt Date: 20150220
  Transmission Date: 20150721
  Serious: Yes (Hospitalization, Other)
  Sender: FDA-Public Use
  Company Number: US-ABBVIE-14P-163-1240505-00

PATIENT
  Age: 46 Year
  Sex: Female

DRUGS (2)
  1. VITIAMINS [Concomitant]
     Indication: PRODUCT USED FOR UNKNOWN INDICATION
  2. HUMIRA [Suspect]
     Active Substance: ADALIMUMAB
     Indication: COLITIS ULCERATIVE

REACTIONS (2)
  - Clostridium difficile infection [Recovered/Resolved]
  - Gastrectomy [Unknown]

NARRATIVE: CASE EVENT DATE: 201201
